FAERS Safety Report 8182377 (Version 3)
Quarter: 2013Q1

REPORT INFORMATION
  Report Type: Spontaneous
  Country: US (occurrence: US)
  Receive Date: 20111014
  Receipt Date: 20130207
  Transmission Date: 20140127
  Serious: Yes (Other)
  Sender: FDA-Public Use
  Company Number: US-ROCHE-1001257

PATIENT
  Age: 23 Year
  Sex: Female
  Weight: 56.75 kg

DRUGS (3)
  1. ACCUTANE [Suspect]
     Indication: ACNE
     Route: 065
     Dates: start: 19910101
  2. ACCUTANE [Suspect]
     Route: 065
     Dates: start: 19920128, end: 199209
  3. ACCUTANE [Suspect]
     Route: 065
     Dates: end: 19931231

REACTIONS (11)
  - Crohn^s disease [Unknown]
  - Colitis ulcerative [Unknown]
  - Inflammatory bowel disease [Unknown]
  - Depression [Not Recovered/Not Resolved]
  - Injury [Unknown]
  - Irritable bowel syndrome [Unknown]
  - Anal fistula [Unknown]
  - Dizziness [Unknown]
  - Headache [Unknown]
  - Lip dry [Recovering/Resolving]
  - Chapped lips [Unknown]
